FAERS Safety Report 4630209-3 (Version None)
Quarter: 2005Q2

REPORT INFORMATION
  Report Type: 
  Country: None (occurrence: None)
  Receive Date: 20050408
  Receipt Date: 20050318
  Transmission Date: 20051028
  Serious: Yes (Hospitalization)
  Sender: FDA-Public Use
  Company Number: FR-BOEHRINGER INGELHEIM PHARMACEUTICALS, INC.-2005-FF-00194FF

PATIENT
  Age: 85 Year
  Sex: Male

DRUGS (1)
  1. CATAPRES [Suspect]
     Route: 048
     Dates: end: 20041029

REACTIONS (9)
  - ANAEMIA [None]
  - BLOOD PRESSURE INCREASED [None]
  - BRADYCARDIA [None]
  - BUNDLE BRANCH BLOCK RIGHT [None]
  - INFLAMMATION [None]
  - LEUKOCYTOSIS [None]
  - MALAISE [None]
  - NERVOUS SYSTEM DISORDER [None]
  - VERTIGO [None]
